FAERS Safety Report 4595681-6 (Version None)
Quarter: 2005Q1

REPORT INFORMATION
  Report Type: 
  Country: None (occurrence: None)
  Receive Date: 20050224
  Receipt Date: 20050125
  Transmission Date: 20050727
  Serious: Yes (Hospitalization)
  Sender: FDA-Public Use
  Company Number: ENT 2005-0011

PATIENT
  Age: 76 Month
  Sex: Male

DRUGS (3)
  1. COMTESS (ENTACAPONE) [Suspect]
     Indication: PARKINSON'S DISEASE
     Dosage: 600 MG (200 MG, 3 IN 1 D); ORAL
     Route: 048
     Dates: start: 20041112, end: 20050125
  2. AMANTADINE HCL [Concomitant]
  3. MADOPAR [Concomitant]

REACTIONS (14)
  - AORTIC ATHEROSCLEROSIS [None]
  - ARTERIOSCLEROTIC RETINOPATHY [None]
  - BALANCE DISORDER [None]
  - CEREBRAL INFARCTION [None]
  - CEREBRAL ISCHAEMIA [None]
  - CEREBROVASCULAR ACCIDENT [None]
  - EXTENSOR PLANTAR RESPONSE [None]
  - EXTRAPYRAMIDAL DISORDER [None]
  - GENERAL PHYSICAL HEALTH DETERIORATION [None]
  - HYPERREFLEXIA [None]
  - HYPOTONIA [None]
  - PUPIL FIXED [None]
  - PUPILLARY LIGHT REFLEX TESTS ABNORMAL [None]
  - REFUSAL OF TREATMENT BY RELATIVE [None]
